FAERS Safety Report 23079838 (Version 1)
Quarter: 2023Q4

REPORT INFORMATION
  Report Type: Spontaneous
  Country: US (occurrence: US)
  Receive Date: 20231018
  Receipt Date: 20231018
  Transmission Date: 20240110
  Serious: Yes (Other)
  Sender: FDA-Public Use
  Company Number: US-PERRIGO-23US011966

PATIENT
  Age: 3 Year
  Sex: Female
  Weight: 11.791 kg

DRUGS (1)
  1. POLYETHYLENE GLYCOL 3350 [Suspect]
     Active Substance: POLYETHYLENE GLYCOL 3350
     Indication: Constipation
     Dosage: 2-3 TEASPOONS MIXED WITH 6-8OZ MILK, ONCE
     Route: 048
     Dates: start: 20231010, end: 20231010

REACTIONS (10)
  - Febrile convulsion [Recovered/Resolved]
  - Loss of consciousness [Recovered/Resolved]
  - Oral pain [Recovered/Resolved]
  - Vomiting projectile [Recovered/Resolved]
  - Feeling hot [Recovered/Resolved]
  - Rash [Recovered/Resolved]
  - Dyspnoea [Recovered/Resolved]
  - Tremor [Recovered/Resolved]
  - Pyrexia [Recovered/Resolved]
  - Product administered to patient of inappropriate age [Recovered/Resolved]

NARRATIVE: CASE EVENT DATE: 20231010
